FAERS Safety Report 17537862 (Version 1)
Quarter: 2020Q1

REPORT INFORMATION
  Report Type: Spontaneous
  Country: US (occurrence: US)
  Receive Date: 20200312
  Receipt Date: 20200312
  Transmission Date: 20200409
  Serious: No
  Sender: FDA-Public Use
  Company Number: None

PATIENT
  Age: 41 Year
  Sex: Male
  Weight: 74.25 kg

DRUGS (1)
  1. MEDICATED PRE-MOISTENED WIPES [WITCH HAZEL] [Suspect]
     Active Substance: WITCH HAZEL
     Indication: HAEMORRHOIDS
     Dates: start: 20200304, end: 20200306

REACTIONS (2)
  - Anorectal discomfort [None]
  - Anal ulcer [None]

NARRATIVE: CASE EVENT DATE: 20200306
